FAERS Safety Report 14558972 (Version 1)
Quarter: 2018Q1

REPORT INFORMATION
  Report Type: Spontaneous
  Country: ES (occurrence: ES)
  Receive Date: 20180221
  Receipt Date: 20180221
  Transmission Date: 20180509
  Serious: Yes (Hospitalization)
  Sender: FDA-Public Use
  Company Number: ES-TEVA-2018-ES-857474

PATIENT
  Age: 67 Year
  Sex: Male

DRUGS (8)
  1. ALOPURINOL 300 [Suspect]
     Active Substance: ALLOPURINOL
     Indication: HYPERURICAEMIA
     Dosage: 1 CP
     Route: 048
     Dates: start: 20160527, end: 20170215
  2. HIDROFEROL 266 [Concomitant]
     Indication: OSTEOPOROSIS
     Dosage: 1 AMP
     Route: 048
     Dates: start: 20160527
  3. ASTUDIR 10 [Concomitant]
     Dosage: 1-0-0
     Route: 048
     Dates: start: 20141209
  4. TAMSULOSINA [Concomitant]
     Active Substance: TAMSULOSIN HYDROCHLORIDE
     Indication: BENIGN PROSTATIC HYPERPLASIA
     Dosage: 1 CP
     Route: 048
     Dates: start: 20160527
  5. AMOXICILINA/ACIDO CLAVULANICO 875 MG/125 MG COMPRIMIDO [Suspect]
     Active Substance: AMOXICILLIN\CLAVULANATE POTASSIUM
     Indication: RESPIRATORY TRACT INFECTION
     Dosage: 1.1.1
     Route: 048
     Dates: start: 20170117, end: 20170123
  6. AZITROMICINA [Suspect]
     Active Substance: AZITHROMYCIN DIHYDRATE
     Indication: RESPIRATORY TRACT INFECTION
     Dosage: 1 CP
     Route: 048
     Dates: start: 20170102, end: 20170106
  7. VALSARTAN/HCT 32/12.5 [Concomitant]
     Dosage: 1-0-0
     Route: 048
     Dates: start: 20141209
  8. LEVOFLOXACINO (2791A) [Suspect]
     Active Substance: LEVOFLOXACIN
     Indication: RESPIRATORY TRACT INFECTION
     Route: 048
     Dates: start: 20170124, end: 20170202

REACTIONS (2)
  - Eosinophilia [Recovering/Resolving]
  - Eosinophilic pleural effusion [Recovered/Resolved]

NARRATIVE: CASE EVENT DATE: 20170221
